FAERS Safety Report 7125281-5 (Version None)
Quarter: 2010Q4

REPORT INFORMATION
  Report Type: 
  Country: None (occurrence: None)
  Receive Date: 20101115
  Receipt Date: 20101110
  Transmission Date: 20110411
  Serious: Yes (Hospitalization)
  Sender: FDA-Public Use
  Company Number: 2008-177916-NL

PATIENT
  Age: 38 Year
  Sex: Female
  Weight: 74.8 kg

DRUGS (10)
  1. NUVARING [Suspect]
     Indication: CONTRACEPTION
     Dosage: 1 DF; ; VAG
     Route: 067
     Dates: start: 20070301, end: 20070521
  2. ALBUTEROL [Concomitant]
  3. PULMICORT [Concomitant]
  4. FLONASE [Concomitant]
  5. VALTREX [Concomitant]
  6. WELLBUTRIN [Concomitant]
  7. CYMBALTA [Concomitant]
  8. LUNESTA [Concomitant]
  9. TYLENOL (CAPLET) [Concomitant]
  10. IBUPROFEN [Concomitant]

REACTIONS (25)
  - ARTHRALGIA [None]
  - BACK PAIN [None]
  - BIPOLAR DISORDER [None]
  - COAGULOPATHY [None]
  - COITAL BLEEDING [None]
  - COMPARTMENT SYNDROME [None]
  - DEEP VEIN THROMBOSIS [None]
  - DIZZINESS [None]
  - EPISTAXIS [None]
  - FUNGAL INFECTION [None]
  - GENITAL HERPES [None]
  - HYPOAESTHESIA [None]
  - INTERNATIONAL NORMALISED RATIO ABNORMAL [None]
  - LIPOMA [None]
  - PELVIC VENOUS THROMBOSIS [None]
  - POST PROCEDURAL COMPLICATION [None]
  - POST THROMBOTIC SYNDROME [None]
  - PROCEDURAL PAIN [None]
  - SKIN DISCOLOURATION [None]
  - SURGICAL FAILURE [None]
  - URINARY TRACT INFECTION [None]
  - URINE ANALYSIS ABNORMAL [None]
  - VULVAL DISORDER [None]
  - VULVOVAGINAL BURNING SENSATION [None]
  - VULVOVAGINAL PAIN [None]
